FAERS Safety Report 9976317 (Version 1)
Quarter: 2014Q1

REPORT INFORMATION
  Report Type: Report from Study
  Country: US (occurrence: US)
  Receive Date: 20140306
  Receipt Date: 20140306
  Transmission Date: 20141002
  Serious: No
  Sender: FDA-Public Use
  Company Number: US-ABBVIE-13P-163-1165559-00

PATIENT
  Age: 26 Year
  Sex: Female

DRUGS (5)
  1. HUMIRA [Suspect]
     Indication: CROHN^S DISEASE
     Route: 058
     Dates: start: 20130806, end: 20130806
  2. HUMIRA [Suspect]
     Route: 058
     Dates: start: 20130820, end: 20130820
  3. HUMIRA [Suspect]
     Route: 058
  4. IMURAN [Concomitant]
  5. IMURAN [Concomitant]

REACTIONS (5)
  - Faecal incontinence [Not Recovered/Not Resolved]
  - Crohn^s disease [Not Recovered/Not Resolved]
  - Abdominal distension [Not Recovered/Not Resolved]
  - Abdominal pain upper [Not Recovered/Not Resolved]
  - Drug specific antibody present [Not Recovered/Not Resolved]
